FAERS Safety Report 5999711-6 (Version None)
Quarter: 2008Q4

REPORT INFORMATION
  Report Type: 
  Country: None (occurrence: None)
  Receive Date: 20081211
  Receipt Date: 20081211
  Transmission Date: 20090506
  Serious: No
  Sender: FDA-Public Use
  Company Number: None

PATIENT
  Age: 5 Year
  Sex: Male
  Weight: 23.1334 kg

DRUGS (3)
  1. SINGULAIR [Suspect]
     Indication: ASTHMA
     Dosage: 4MG  ONE AT BEDTIME PO
     Route: 048
     Dates: start: 20050320, end: 20081129
  2. SINGULAIR [Suspect]
     Indication: COUGH
     Dosage: 4MG  ONE AT BEDTIME PO
     Route: 048
     Dates: start: 20050320, end: 20081129
  3. SINGULAIR [Suspect]
     Indication: MULTIPLE ALLERGIES
     Dosage: 4MG  ONE AT BEDTIME PO
     Route: 048
     Dates: start: 20050320, end: 20081129

REACTIONS (8)
  - ABNORMAL BEHAVIOUR [None]
  - CRYING [None]
  - DYSKINESIA [None]
  - EXCESSIVE EYE BLINKING [None]
  - MOOD SWINGS [None]
  - NERVOUSNESS [None]
  - SINUSITIS [None]
  - TIC [None]
